FAERS Safety Report 12099204 (Version 1)
Quarter: 2016Q1

REPORT INFORMATION
  Report Type: Spontaneous
  Country: US (occurrence: US)
  Receive Date: 20160222
  Receipt Date: 20160222
  Transmission Date: 20160526
  Serious: Yes (Death)
  Sender: FDA-Public Use
  Company Number: US-PFIZER INC-2016095031

PATIENT
  Age: 63 Year
  Sex: Female
  Weight: 50.58 kg

DRUGS (3)
  1. OXYCODONE [Concomitant]
     Active Substance: OXYCODONE
     Indication: PAIN
     Dosage: 5 MG, EVERY THREE HOURS
  2. IBRANCE [Suspect]
     Active Substance: PALBOCICLIB
     Indication: ANGIOSARCOMA
     Dosage: 125 MG, CYCLIC (28 DAYS CYCLE, ONCE A DAY)
     Route: 048
     Dates: start: 20160113
  3. SYNTHROID [Concomitant]
     Active Substance: LEVOTHYROXINE SODIUM
     Dosage: 50 UG, DAILY

REACTIONS (3)
  - Disease progression [Fatal]
  - Product use issue [Unknown]
  - Angiosarcoma [Fatal]
